FAERS Safety Report 8182450-3 (Version None)
Quarter: 2012Q1

REPORT INFORMATION
  Report Type: 
  Country: None (occurrence: None)
  Receive Date: 20120305
  Receipt Date: 20120227
  Transmission Date: 20120608
  Serious: Yes (Hospitalization)
  Sender: FDA-Public Use
  Company Number: IT-BIOGENIDEC-2012BI003822

PATIENT
  Age: 44 Year
  Sex: Male

DRUGS (5)
  1. TYSABRI [Suspect]
     Indication: RELAPSING-REMITTING MULTIPLE SCLEROSIS
     Route: 042
     Dates: start: 20090702, end: 20110601
  2. BETASERON [Concomitant]
     Dosage: DOSE UNIT:250
     Route: 058
     Dates: start: 20110921, end: 20111215
  3. UNSPECIFIED MEDICATION [Concomitant]
     Indication: DEPRESSION
  4. DEPAKENE [Concomitant]
     Route: 048
     Dates: start: 20110111, end: 20111221
  5. PROMAZINE HYDROCHLORIDE [Concomitant]
     Route: 048
     Dates: start: 20110728, end: 20111221

REACTIONS (1)
  - CENTRAL NERVOUS SYSTEM INFLAMMATION [None]
